FAERS Safety Report 10085853 (Version 2)
Quarter: 2014Q3

REPORT INFORMATION
  Report Type: Spontaneous
  Country: US (occurrence: US)
  Receive Date: 20140418
  Receipt Date: 20140725
  Transmission Date: 20150326
  Serious: Yes (Other)
  Sender: FDA-Public Use
  Company Number: US-PFIZER INC-2014106829

PATIENT
  Age: 81 Year
  Sex: Male

DRUGS (3)
  1. XALKORI [Suspect]
     Active Substance: CRIZOTINIB
     Indication: LUNG NEOPLASM MALIGNANT
     Dosage: 250 MG, 2X/DAY
     Route: 048
     Dates: start: 20140325, end: 20140411
  2. XALKORI [Suspect]
     Active Substance: CRIZOTINIB
     Dosage: 200 MG, 2X/DAY
     Dates: start: 20140325
  3. XALKORI [Suspect]
     Active Substance: CRIZOTINIB
     Dosage: UNK, 1X/DAY

REACTIONS (10)
  - Nausea [Unknown]
  - Decreased appetite [Unknown]
  - Diarrhoea [Unknown]
  - Dysgeusia [Unknown]
  - Asthenia [Unknown]
  - Dysphagia [Unknown]
  - Dyspepsia [Unknown]
  - Weight decreased [Unknown]
  - Constipation [Unknown]
  - Abdominal discomfort [Unknown]
